FAERS Safety Report 7930548-4 (Version None)
Quarter: 2011Q4

REPORT INFORMATION
  Report Type: 
  Country: None (occurrence: None)
  Receive Date: 20111121
  Receipt Date: 20111107
  Transmission Date: 20120403
  Serious: Yes (Life-Threatening, Hospitalization)
  Sender: FDA-Public Use
  Company Number: US-ROCHE-1013083

PATIENT

DRUGS (9)
  1. MESNA [Suspect]
     Indication: OSTEOSARCOMA METASTATIC
     Route: 042
     Dates: start: 20000405
  2. CISPLATIN [Suspect]
     Indication: OSTEOSARCOMA METASTATIC
     Dosage: OVER 4 HOURS  DAILY FOR 2 DAYS, ON DAYS 1 AND 2
     Route: 042
     Dates: start: 20000405
  3. ETOPOSIDE [Suspect]
     Indication: OSTEOSARCOMA METASTATIC
     Dosage: OVER 1 HOUR  DAILY FOR 5 DAYS
     Route: 042
     Dates: start: 20000405
  4. DOXORUBICIN HCL [Suspect]
     Indication: OSTEOSARCOMA METASTATIC
     Route: 042
     Dates: start: 20050405
  5. HERCEPTIN [Suspect]
     Indication: OSTEOSARCOMA METASTATIC
     Dosage: 2 MG/KG, OVER 90 MINUTES  DAY 1, EVERY WEEK FOR 37 WEEKS.
     Route: 042
     Dates: start: 20050405
  6. METHOTREXATE [Suspect]
     Indication: OSTEOSARCOMA METASTATIC
     Dosage: 12 G/M2 OVER 4 HOURS  DAILY FOR 1 DAY,  INTRAVENOUS LEUCOVORIN 15MG (24 HOURS POST MTX) Q 6HRS X 10
     Route: 042
     Dates: start: 20000405
  7. DEXRAZOXANE HYDROCHLORIDE [Suspect]
     Indication: OSTEOSARCOMA METASTATIC
     Dosage: OVER 15 MINUTES  DAILY FOR 2 DAYS ON DAYS 1 AND 2
     Route: 042
     Dates: start: 20050405
  8. LEUCOVORIN CALCIUM [Suspect]
     Indication: OSTEOSARCOMA METASTATIC
     Dosage: Q 6HRS X 10 DOSES (MINIMUM) UNTIL MTX LEVEL IS{0.1 MICROMOLAR
     Route: 042
     Dates: start: 20000405
  9. IFOSFAMIDE [Suspect]
     Indication: OSTEOSARCOMA METASTATIC
     Route: 042
     Dates: start: 20000405

REACTIONS (1)
  - CONVULSION [None]
